FAERS Safety Report 12283973 (Version 1)
Quarter: 2016Q2

REPORT INFORMATION
  Report Type: Spontaneous
  Country: US (occurrence: US)
  Receive Date: 20160419
  Receipt Date: 20160419
  Transmission Date: 20160815
  Serious: Yes (Other)
  Sender: FDA-Public Use
  Company Number: US-BEXIMCO-2016BEX00008

PATIENT
  Age: 47 Year
  Sex: Male
  Weight: 79.37 kg

DRUGS (3)
  1. ASPIRIN. [Concomitant]
     Active Substance: ASPIRIN
     Dosage: 81 MG, 1X/DAY
  2. MULTIVITAMIN [Concomitant]
     Active Substance: VITAMINS
     Dosage: 0.5 DOSAGE UNITS, AS NEEDED
  3. CARVEDILOL. [Suspect]
     Active Substance: CARVEDILOL
     Dosage: 12.5 MG, 2X/DAY
     Route: 048
     Dates: start: 2012, end: 201602

REACTIONS (4)
  - Drug ineffective for unapproved indication [Unknown]
  - Congestive cardiomyopathy [Recovered/Resolved]
  - Cardiac failure [Unknown]
  - Ventricular hypertrophy [Unknown]

NARRATIVE: CASE EVENT DATE: 201601
